FAERS Safety Report 8652989 (Version 2)
Quarter: 2012Q4

REPORT INFORMATION
  Report Type: Report from Study
  Country: ES (occurrence: ES)
  Receive Date: 20120706
  Receipt Date: 20121115
  Transmission Date: 20130627
  Serious: Yes (Hospitalization, Other)
  Sender: FDA-Public Use
  Company Number: ES-ELI_LILLY_AND_COMPANY-ES201111008436

PATIENT
  Age: 59 Year
  Sex: Male

DRUGS (13)
  1. GEMCITABINE HYDROCHLORIDE [Suspect]
     Indication: LUNG NEOPLASM MALIGNANT
     Dosage: 2362.5 mg, other
     Route: 042
     Dates: start: 20111117
  2. CISPLATIN [Suspect]
     Indication: LUNG NEOPLASM MALIGNANT
     Dosage: 141.75 mg, other
     Route: 042
     Dates: start: 20111117
  3. OMEPRAZOL [Concomitant]
     Indication: PROPHYLAXIS
     Dosage: 20 mg, UNK
     Route: 048
     Dates: start: 2003
  4. MORPHINE [Concomitant]
     Indication: PAIN
     Dosage: 260 mg, UNK
     Route: 048
     Dates: start: 20111115
  5. FENTANYL [Concomitant]
     Indication: PAIN
     Dosage: 3200 ug, UNK
     Route: 048
     Dates: start: 20111115
  6. NYSTATIN [Concomitant]
     Indication: ANTIFUNGAL TREATMENT
     Dosage: UNK mg, topical antifungal
     Route: 061
     Dates: start: 201111
  7. NYSTATIN [Concomitant]
     Dosage: UNK mg, oral antifungal
     Route: 048
     Dates: start: 20111108
  8. HALOPERIDOL [Concomitant]
     Indication: ANXIETY
     Dosage: UNK mg, UNK
     Route: 048
     Dates: start: 201110
  9. MOVICOL [Concomitant]
     Indication: PROPHYLAXIS
     Dosage: UNK mg, UNK
     Route: 048
     Dates: start: 20111023
  10. METOCLOPRAMIDE [Concomitant]
     Indication: NAUSEA
     Dosage: 30 mg, UNK
     Route: 048
     Dates: start: 20111021
  11. BISACODYL [Concomitant]
     Indication: PROPHYLAXIS
     Dosage: 5 mg, UNK
     Route: 048
     Dates: start: 20111021
  12. ZOLPIDEM [Concomitant]
     Indication: ANXIETY
     Dosage: 10 mg, UNK
     Route: 048
     Dates: start: 201111
  13. CALCIUM DOBESILATE [Concomitant]
     Indication: PROPHYLAXIS
     Dosage: 1 g, UNK
     Route: 048
     Dates: start: 2005

REACTIONS (2)
  - Pneumonia [Recovering/Resolving]
  - Venous thrombosis limb [Recovering/Resolving]
